FAERS Safety Report 13670129 (Version 1)
Quarter: 2017Q2

REPORT INFORMATION
  Report Type: Spontaneous
  Country: US (occurrence: US)
  Receive Date: 20170620
  Receipt Date: 20170620
  Transmission Date: 20170830
  Serious: No
  Sender: FDA-Public Use
  Company Number: US-TAKEDA-2017TUS013405

PATIENT
  Age: 63 Year
  Sex: Female
  Weight: 74.83 kg

DRUGS (1)
  1. TRINTELLIX [Suspect]
     Active Substance: VORTIOXETINE HYDROBROMIDE
     Indication: DEPRESSION
     Dosage: UNK
     Route: 065
     Dates: start: 20170118, end: 201705

REACTIONS (5)
  - Irritability [Recovering/Resolving]
  - Energy increased [Unknown]
  - Anger [Recovering/Resolving]
  - Hallucination [Recovered/Resolved]
  - Insomnia [Unknown]

NARRATIVE: CASE EVENT DATE: 201701
